FAERS Safety Report 10542430 (Version 1)
Quarter: 2014Q4

REPORT INFORMATION
  Report Type: Spontaneous
  Country: IT (occurrence: IT)
  Receive Date: 20141026
  Receipt Date: 20141026
  Transmission Date: 20150529
  Serious: Yes (Hospitalization)
  Sender: FDA-Public Use
  Company Number: IT-BRISTOL-MYERS SQUIBB COMPANY-21505797

PATIENT
  Age: 82 Year
  Sex: Male

DRUGS (4)
  1. TARGIN [Concomitant]
     Active Substance: NALOXONE HYDROCHLORIDE\OXYCODONE HYDROCHLORIDE
  2. SEQUACOR [Concomitant]
     Active Substance: BISOPROLOL
  3. PANTOPRAZOLE [Concomitant]
     Active Substance: PANTOPRAZOLE SODIUM
  4. COUMADIN [Suspect]
     Active Substance: WARFARIN SODIUM
     Dosage: 1 DF = 1UNIT
     Route: 048
     Dates: start: 20040101, end: 20141010

REACTIONS (4)
  - Carotid artery occlusion [Recovering/Resolving]
  - Cerebral infarction [Recovering/Resolving]
  - Drug ineffective [Recovering/Resolving]
  - Cerebral artery embolism [Recovering/Resolving]

NARRATIVE: CASE EVENT DATE: 20141010
